FAERS Safety Report 15483985 (Version 1)
Quarter: 2018Q4

REPORT INFORMATION
  Report Type: Spontaneous
  Country: US (occurrence: US)
  Receive Date: 20181003
  Receipt Date: 20181003
  Transmission Date: 20190205
  Serious: Yes (Other)
  Sender: FDA-Public Use
  Company Number: None

PATIENT
  Age: 68 Year
  Sex: Male
  Weight: 65.25 kg

DRUGS (6)
  1. NINLARO [Suspect]
     Active Substance: IXAZOMIB CITRATE
     Indication: PLASMA CELL MYELOMA
     Dosage: ?          OTHER FREQUENCY:DAYS 1,8, AND 15;?
     Route: 048
     Dates: start: 20180820
  2. NORVASC [Concomitant]
     Active Substance: AMLODIPINE BESYLATE
  3. THALOMID [Concomitant]
     Active Substance: THALIDOMIDE
  4. POMALYST [Concomitant]
     Active Substance: POMALIDOMIDE
  5. ACYCLOVIR. [Concomitant]
     Active Substance: ACYCLOVIR
  6. ASPIRIN. [Concomitant]
     Active Substance: ASPIRIN

REACTIONS (1)
  - Renal disorder [None]

NARRATIVE: CASE EVENT DATE: 20181003
